FAERS Safety Report 21681585 (Version 8)
Quarter: 2023Q1

REPORT INFORMATION
  Report Type: Spontaneous
  Country: US (occurrence: US)
  Receive Date: 20221205
  Receipt Date: 20230320
  Transmission Date: 20230417
  Serious: No
  Sender: FDA-Public Use
  Company Number: US-PFIZER INC-PV202200115110

PATIENT
  Age: 17 Year
  Sex: Male
  Weight: 48.99 kg

DRUGS (3)
  1. GENOTROPIN [Suspect]
     Active Substance: SOMATROPIN
     Dosage: 1.4 MG (3 DAYS A WEEK)
  2. GENOTROPIN [Suspect]
     Active Substance: SOMATROPIN
     Dosage: 1.6 MG (3 DAYS A WEEK)
  3. GENOTROPIN [Suspect]
     Active Substance: SOMATROPIN
     Dosage: UNK (ROTATES BETWEEN 2.6MG AND 2.4MG TO EQUAL 2.5MG, SKIPS SATURDAYS)

REACTIONS (4)
  - Device use error [Unknown]
  - Device breakage [Unknown]
  - Device occlusion [Unknown]
  - Drug dose omission by device [Unknown]
